FAERS Safety Report 17466192 (Version 1)
Quarter: 2020Q1

REPORT INFORMATION
  Report Type: Spontaneous
  Country: CN (occurrence: CN)
  Receive Date: 20200227
  Receipt Date: 20200227
  Transmission Date: 20200409
  Serious: Yes (Hospitalization)
  Sender: FDA-Public Use
  Company Number: CN-BAXTER-2020BAX004040

PATIENT
  Age: 7 Year
  Sex: Female
  Weight: 20 kg

DRUGS (7)
  1. 0.9% SODIUM CHLORIDE INJECTION [Suspect]
     Active Substance: SODIUM CHLORIDE
     Indication: MEDICATION DILUTION
     Dosage: DAY 1 TO DAY 5; ENDOXAN 203 MG + 0.9% NS 48.8 ML
     Route: 041
     Dates: start: 20200205, end: 20200209
  2. MESNA. [Suspect]
     Active Substance: MESNA
     Indication: PROPHYLAXIS
     Dosage: DAY 1 TO 5
     Route: 042
     Dates: start: 20200205, end: 20200209
  3. HEMEIXIN [Suspect]
     Active Substance: TOPOTECAN HYDROCHLORIDE
     Indication: NEUROBLASTOMA RECURRENT
     Dosage: DAY 1 TO DAY 5; HEMEIXIN 0.61 MG + 0.9% NS 24ML
     Route: 041
     Dates: start: 20200205, end: 20200209
  4. ONDANSETRON HYDROCHLORIDE. [Suspect]
     Active Substance: ONDANSETRON HYDROCHLORIDE
     Indication: ANTIEMETIC SUPPORTIVE CARE
     Dosage: DAY 1 TO DAY 5; ONDANSETRON 4 MG + 0.9% NS 25ML
     Route: 041
     Dates: start: 20200205, end: 20200209
  5. ENDOXAN [Suspect]
     Active Substance: CYCLOPHOSPHAMIDE
     Indication: NEUROBLASTOMA RECURRENT
     Dosage: DAY 1 TO DAY 5; ENDOXAN 203 MG + 0.9% NS 48.8 ML
     Route: 041
     Dates: start: 20200205, end: 20200209
  6. 0.9% SODIUM CHLORIDE INJECTION [Suspect]
     Active Substance: SODIUM CHLORIDE
     Dosage: DAY 1 TO DAY 5; ONDANSETRON 4 MG + 0.9% NS 25ML
     Route: 041
     Dates: start: 20200205, end: 20200209
  7. 0.9% SODIUM CHLORIDE INJECTION [Suspect]
     Active Substance: SODIUM CHLORIDE
     Dosage: DAY 1 TO DAY 5; HEMEIXIN 0.61 MG + 0.9% NS 24ML
     Route: 041
     Dates: start: 20200205, end: 20200209

REACTIONS (2)
  - Cytopenia [Recovering/Resolving]
  - Pyrexia [Recovered/Resolved]

NARRATIVE: CASE EVENT DATE: 20200208
